FAERS Safety Report 6504470-4 (Version None)
Quarter: 2009Q4

REPORT INFORMATION
  Report Type: 
  Country: None (occurrence: None)
  Receive Date: 20091217
  Receipt Date: 20090914
  Transmission Date: 20100525
  Serious: Yes (Hospitalization)
  Sender: FDA-Public Use
  Company Number: AU-AMGEN-US342893

PATIENT
  Sex: Female

DRUGS (9)
  1. ROMIPLOSTIM [Suspect]
     Indication: IDIOPATHIC THROMBOCYTOPENIC PURPURA
     Route: 058
     Dates: start: 20090107
  2. ROMIPLOSTIM [Suspect]
     Route: 058
     Dates: start: 20090107, end: 20090114
  3. ROMIPLOSTIM [Suspect]
     Route: 058
     Dates: start: 20090121, end: 20090121
  4. ROMIPLOSTIM [Suspect]
     Route: 058
     Dates: start: 20090128, end: 20090128
  5. ROMIPLOSTIM [Suspect]
     Route: 058
     Dates: start: 20090204, end: 20090217
  6. ROMIPLOSTIM [Suspect]
     Route: 058
     Dates: start: 20090225, end: 20090310
  7. ROMIPLOSTIM [Suspect]
     Route: 058
     Dates: start: 20090318
  8. ACETAMINOPHEN AND CODEINE PHOSPHATE [Concomitant]
     Dates: start: 19840101
  9. TEMAZEPAM [Concomitant]
     Dates: start: 20080101

REACTIONS (1)
  - NEUTROPENIA [None]
